FAERS Safety Report 4894583-5 (Version None)
Quarter: 2006Q1

REPORT INFORMATION
  Report Type: 
  Country: None (occurrence: None)
  Receive Date: 20060127
  Receipt Date: 20060123
  Transmission Date: 20060701
  Serious: Yes (Hospitalization)
  Sender: FDA-Public Use
  Company Number: ES-MERCK-0601ESP00049

PATIENT
  Age: 39 Year
  Sex: Female

DRUGS (6)
  1. SINGULAIR [Suspect]
     Indication: ASTHMA
     Route: 048
     Dates: end: 20051108
  2. ALPRAZOLAM [Concomitant]
     Route: 048
  3. DESOGESTREL AND ETHINYL ESTRADIOL [Concomitant]
     Route: 048
  4. ALBUTEROL SULFATE AND IPRATROPIUM BROMIDE [Concomitant]
     Indication: ASTHMA
     Route: 055
  5. METHYLPREDNISOLONE [Concomitant]
     Indication: PNEUMONIA
     Route: 065
     Dates: end: 20051103
  6. LEVOFLOXACIN [Concomitant]
     Indication: PNEUMONIA
     Route: 048
     Dates: start: 20051001, end: 20051015

REACTIONS (1)
  - PULMONARY EOSINOPHILIA [None]
